FAERS Safety Report 16759339 (Version 1)
Quarter: 2019Q3

REPORT INFORMATION
  Report Type: Spontaneous
  Country: US (occurrence: US)
  Receive Date: 20190830
  Receipt Date: 20190830
  Transmission Date: 20191005
  Serious: No
  Sender: FDA-Public Use
  Company Number: US-AMGEN-USASP2019138284

PATIENT
  Sex: Female

DRUGS (6)
  1. AIMOVIG [Suspect]
     Active Substance: ERENUMAB-AOOE
     Indication: MIGRAINE
     Dosage: UNK
     Route: 065
  2. BOTOX [Concomitant]
     Active Substance: ONABOTULINUMTOXINA
     Indication: MIGRAINE
  3. ENTYVIO [Concomitant]
     Active Substance: VEDOLIZUMAB
     Indication: INFLAMMATORY BOWEL DISEASE
     Dosage: UNK
     Dates: start: 201703
  4. SACCHAROMYCES BOULARDII [Concomitant]
     Active Substance: SACCHAROMYCES CEREVISIAE
  5. REMICADE [Concomitant]
     Active Substance: INFLIXIMAB
     Indication: MIGRAINE
  6. 6 MP [Concomitant]
     Active Substance: MERCAPTOPURINE
     Indication: INFLAMMATORY BOWEL DISEASE
     Dosage: UNK
     Dates: start: 201908

REACTIONS (2)
  - Pruritus [Unknown]
  - Rash papular [Unknown]
